FAERS Safety Report 4703073-1 (Version None)
Quarter: 2005Q2

REPORT INFORMATION
  Report Type: 
  Country: None (occurrence: None)
  Receive Date: 20050628
  Receipt Date: 20050628
  Transmission Date: 20051028
  Serious: No
  Sender: FDA-Public Use
  Company Number: None

PATIENT
  Age: 63 Year
  Sex: Female

DRUGS (1)
  1. GEODON [Suspect]
     Indication: MANIA
     Dosage: 60MG PO BID
     Route: 048

REACTIONS (2)
  - AKATHISIA [None]
  - DISCOMFORT [None]
